FAERS Safety Report 9994806 (Version 2)
Quarter: 2014Q1

REPORT INFORMATION
  Report Type: Spontaneous
  Country: US (occurrence: None)
  Receive Date: 20140306
  Receipt Date: 20140318
  Transmission Date: 20141002
  Serious: Yes (Other)
  Sender: FDA-Public Use
  Company Number: AUR-APL-2014-02310

PATIENT
  Age: 58 Year
  Sex: Female

DRUGS (1)
  1. LEVOFLOXACIN (LEVOFLOXACIN) [Suspect]
     Indication: EVIDENCE BASED TREATMENT

REACTIONS (5)
  - Myalgia [None]
  - Rash erythematous [None]
  - Rash pruritic [None]
  - Organising pneumonia [None]
  - Eosinophilic pneumonia [None]
